FAERS Safety Report 4758843-0 (Version None)
Quarter: 2005Q3

REPORT INFORMATION
  Report Type: 
  Country: None (occurrence: None)
  Receive Date: 20050901
  Receipt Date: 20050629
  Transmission Date: 20060218
  Serious: Yes (Other)
  Sender: FDA-Public Use
  Company Number: US-MERCK-0507USA00202

PATIENT
  Age: 73 Year
  Sex: Female
  Weight: 114 kg

DRUGS (15)
  1. AMBIEN [Concomitant]
     Route: 065
  2. ARIMIDEX [Concomitant]
     Route: 065
  3. CYCLOBENZAPRINE HYDROCHLORIDE [Concomitant]
     Route: 065
  4. FUROSEMIDE [Concomitant]
     Route: 065
  5. HYDROCODONE BITARTRATE + ACETAMINOPHEN [Concomitant]
     Route: 065
  6. METHYLPREDNISOLONE [Concomitant]
     Route: 065
  7. METRONIDAZOLE [Concomitant]
     Route: 065
  8. NULYTELY [Concomitant]
     Route: 065
  9. PERCOCET [Concomitant]
     Route: 065
  10. PIROXICAM [Concomitant]
     Route: 065
  11. POTASSIUM CHLORIDE [Concomitant]
     Route: 065
  12. PREVACID [Concomitant]
     Route: 065
  13. ROXICET [Concomitant]
     Route: 065
  14. WARFARIN [Concomitant]
     Route: 065
  15. VIOXX [Suspect]
     Indication: ARTHRITIS
     Route: 048
     Dates: start: 20011118, end: 20040930

REACTIONS (13)
  - APPENDICECTOMY [None]
  - APPENDIX DISORDER [None]
  - ARTHROPATHY [None]
  - BREAST DISORDER [None]
  - GASTRIC HAEMORRHAGE [None]
  - HIP ARTHROPLASTY [None]
  - HYSTERECTOMY [None]
  - LYMPHADENECTOMY [None]
  - LYMPHADENOPATHY [None]
  - MASTECTOMY [None]
  - MYOCARDIAL INFARCTION [None]
  - PULMONARY EMBOLISM [None]
  - UTERINE DISORDER [None]
